FAERS Safety Report 4985993-6 (Version None)
Quarter: 2006Q2

REPORT INFORMATION
  Report Type: 
  Country: None (occurrence: None)
  Receive Date: 20060417
  Receipt Date: 20060412
  Transmission Date: 20061013
  Serious: Yes (Hospitalization)
  Sender: FDA-Public Use
  Company Number: 200609828

PATIENT
  Age: 69 Year
  Sex: Male

DRUGS (2)
  1. CARIMUNE [Suspect]
     Indication: DEMYELINATING POLYNEUROPATHY
     Dosage: 0.4 G/KG B.W. DAILY; IV
     Route: 042
  2. CARIMUNE [Suspect]
     Indication: PERIPHERAL SENSORY NEUROPATHY
     Dosage: 0.4 G/KG B.W. DAILY; IV
     Route: 042

REACTIONS (2)
  - CARDIAC FAILURE CONGESTIVE [None]
  - RENAL FAILURE ACUTE [None]
